FAERS Safety Report 5340957-8 (Version None)
Quarter: 2007Q2

REPORT INFORMATION
  Report Type: 
  Country: None (occurrence: None)
  Receive Date: 20070405
  Receipt Date: 20070122
  Transmission Date: 20071010
  Serious: No
  Sender: FDA-Public Use
  Company Number: US200701004208

PATIENT
  Age: 44 Year
  Sex: Female

DRUGS (6)
  1. CYMBALTA [Suspect]
     Indication: NECK PAIN
     Dosage: 30 MG, , 50 MG
     Dates: end: 20070120
  2. CYMBALTA [Suspect]
     Indication: NECK PAIN
     Dosage: 30 MG, , 50 MG
     Dates: start: 20070109
  3. HYDROCODONE (HYDROCODONE) [Concomitant]
  4. XANAX [Concomitant]
  5. LASIX [Concomitant]
  6. POTASSIUM (POTASSIUM) [Concomitant]

REACTIONS (6)
  - BLISTER [None]
  - FATIGUE [None]
  - FEELING JITTERY [None]
  - HEART RATE INCREASED [None]
  - HERPES SIMPLEX [None]
  - RASH [None]
